FAERS Safety Report 8279447-1 (Version None)
Quarter: 2012Q2

REPORT INFORMATION
  Report Type: 
  Country: None (occurrence: None)
  Receive Date: 20120412
  Receipt Date: 20110727
  Transmission Date: 20120825
  Serious: No
  Sender: FDA-Public Use
  Company Number: US-ASTRAZENECA-2009UW06327

PATIENT
  Sex: Female
  Weight: 67.1 kg

DRUGS (9)
  1. XALATAN [Concomitant]
  2. TRAMADOL HCL [Concomitant]
  3. NEXIUM [Suspect]
     Indication: GASTROOESOPHAGEAL REFLUX DISEASE
     Route: 048
  4. PLAVIX [Concomitant]
  5. HYDROCHLOROTHIAZIDE [Concomitant]
  6. TYLENOL (CAPLET) [Concomitant]
  7. TIMOLOL MALEATE [Concomitant]
  8. EVISTA [Concomitant]
  9. AVAPRO [Concomitant]

REACTIONS (3)
  - BACK DISORDER [None]
  - SPINAL DISORDER [None]
  - BLOOD PRESSURE FLUCTUATION [None]
